FAERS Safety Report 10272459 (Version 1)
Quarter: 2014Q2

REPORT INFORMATION
  Report Type: Spontaneous
  Country: US (occurrence: None)
  Receive Date: 20140630
  Receipt Date: 20140630
  Transmission Date: 20141212
  Serious: Yes (Other)
  Sender: FDA-Public Use
  Company Number: None

PATIENT
  Age: 36 Year
  Sex: Female
  Weight: 97.52 kg

DRUGS (2)
  1. PAXIL PAXIL 20MG [Suspect]
     Indication: ANXIETY
     Route: 048
     Dates: start: 20130615, end: 20140627
  2. PAXIL PAXIL 20MG [Suspect]
     Indication: POST-TRAUMATIC STRESS DISORDER
     Route: 048
     Dates: start: 20130615, end: 20140627

REACTIONS (8)
  - Drug withdrawal syndrome [None]
  - Suicidal ideation [None]
  - Nightmare [None]
  - Restlessness [None]
  - Insomnia [None]
  - Dizziness [None]
  - Feeling abnormal [None]
  - Dyskinesia [None]
